FAERS Safety Report 21401215 (Version 1)
Quarter: 2022Q4

REPORT INFORMATION
  Report Type: Report from Study
  Country: SE (occurrence: SE)
  Receive Date: 20221003
  Receipt Date: 20221003
  Transmission Date: 20230113
  Serious: Yes (Death, Other)
  Sender: FDA-Public Use
  Company Number: SE-MYLANLABS-2022M1092862

PATIENT
  Sex: Male

DRUGS (1)
  1. CREON [Suspect]
     Active Substance: PANCRELIPASE AMYLASE\PANCRELIPASE LIPASE\PANCRELIPASE PROTEASE
     Indication: Pancreatic carcinoma
     Dosage: (250000E 4ST(BREAKFAST AND LUNCH) 25000E 3-4ST (DINNER) 25000E 1-2 FOR SNACKS)
     Route: 048

REACTIONS (1)
  - Pancreatic carcinoma [Fatal]
